FAERS Safety Report 8117132-7 (Version None)
Quarter: 2012Q1

REPORT INFORMATION
  Report Type: 
  Country: None (occurrence: None)
  Receive Date: 20120206
  Receipt Date: 20120125
  Transmission Date: 20120608
  Serious: Yes (Hospitalization)
  Sender: FDA-Public Use
  Company Number: US-PFIZER INC-2011242944

PATIENT
  Sex: Female
  Weight: 68.481 kg

DRUGS (9)
  1. ONDANSETRON HCL [Concomitant]
     Indication: NAUSEA
     Dosage: UNK
     Dates: start: 20110705
  2. KEPPRA [Concomitant]
     Indication: CONVULSION
     Dosage: 500 MG, 2X/DAY
     Dates: start: 20110301, end: 20110701
  3. COLACE [Concomitant]
     Indication: CONSTIPATION
     Dosage: UNK
     Dates: start: 20110701
  4. KEPPRA [Concomitant]
     Dosage: 750 MG, 2X/DAY
     Dates: start: 20110701
  5. CRIZOTINIB [Suspect]
     Indication: NON-SMALL CELL LUNG CANCER
     Dosage: 250 MG, 2X/DAY
     Route: 048
     Dates: start: 20110614
  6. SYNTHROID [Concomitant]
     Indication: HYPOTHYROIDISM
     Dosage: UNK
     Dates: start: 20110705
  7. LOVENOX [Concomitant]
     Indication: THROMBOSIS PROPHYLAXIS
     Dosage: UNK
     Dates: start: 20110701
  8. LASIX [Concomitant]
     Indication: OEDEMA
     Dosage: UNK
     Dates: start: 20110701
  9. COMPAZINE [Concomitant]
     Indication: NAUSEA
     Dosage: UNK
     Dates: start: 20110705

REACTIONS (1)
  - CONVULSION [None]
